FAERS Safety Report 7218135-7 (Version None)
Quarter: 2011Q1

REPORT INFORMATION
  Report Type: 
  Country: None (occurrence: None)
  Receive Date: 20110110
  Receipt Date: 20101230
  Transmission Date: 20110831
  Serious: Yes (Hospitalization)
  Sender: FDA-Public Use
  Company Number: US-PFIZER INC-2010182243

PATIENT
  Sex: Female
  Weight: 54.422 kg

DRUGS (4)
  1. CALCIUM [Concomitant]
     Dosage: UNK
     Route: 048
  2. EFFEXOR XR [Suspect]
     Indication: SOCIAL PHOBIA
     Dosage: 150 MG, 1X/DAY
     Route: 048
  3. EFFEXOR XR [Suspect]
     Indication: PANIC DISORDER
  4. MULTI-VITAMINS [Concomitant]
     Dosage: UNK
     Route: 048

REACTIONS (1)
  - HIP ARTHROPLASTY [None]
